FAERS Safety Report 22256888 (Version 1)
Quarter: 2023Q2

REPORT INFORMATION
  Report Type: Report from Study
  Country: US (occurrence: US)
  Receive Date: 20230426
  Receipt Date: 20230426
  Transmission Date: 20230721
  Serious: Yes (Hospitalization, Other)
  Sender: FDA-Public Use
  Company Number: US-ABBVIE-4742790

PATIENT
  Age: 81 Year
  Sex: Male

DRUGS (1)
  1. IMBRUVICA [Suspect]
     Active Substance: IBRUTINIB
     Indication: Chronic lymphocytic leukaemia
     Dosage: TIME INTERVAL: 0.33333333 DAYS
     Route: 048

REACTIONS (9)
  - Hospitalisation [Unknown]
  - Seizure [Unknown]
  - Pain [Unknown]
  - Cerebral haemorrhage [Unknown]
  - Gait disturbance [Unknown]
  - Fall [Unknown]
  - Speech disorder [Unknown]
  - Concussion [Unknown]
  - Head injury [Unknown]

NARRATIVE: CASE EVENT DATE: 20230408
